FAERS Safety Report 21067066 (Version 2)
Quarter: 2024Q1

REPORT INFORMATION
  Report Type: Spontaneous
  Country: AU (occurrence: AU)
  Receive Date: 20220712
  Receipt Date: 20240202
  Transmission Date: 20240410
  Serious: Yes (Hospitalization, Other)
  Sender: FDA-Public Use
  Company Number: AU-NEBO-PC008639

PATIENT

DRUGS (1)
  1. IRON ISOMALTOSIDE 1000 [Suspect]
     Active Substance: IRON ISOMALTOSIDE 1000
     Indication: Product used for unknown indication
     Route: 050

REACTIONS (2)
  - Syncope [Unknown]
  - Alopecia [Unknown]
